FAERS Safety Report 8557500-2 (Version None)
Quarter: 2012Q2

REPORT INFORMATION
  Report Type: 
  Country: None (occurrence: None)
  Receive Date: 20120418
  Receipt Date: 20100301
  Transmission Date: 20120825
  Serious: Yes (Other)
  Sender: FDA-Public Use
  Company Number: PHHY2010US13029

PATIENT
  Age: 55 Year
  Sex: Female
  Weight: 104.3 kg

DRUGS (7)
  1. LORATADINE [Concomitant]
  2. GLIMEPIRIDE [Concomitant]
  3. ROSIGLITAZONE [Concomitant]
  4. SIMVASTATIN [Concomitant]
  5. LEVOTHYROXINE SODIUM [Concomitant]
  6. DIOVAN HCT [Suspect]
     Dosage: 160/12.5, QD, ORAL
     Route: 048
  7. TRIPLEX (ACETYLSALICYLIC ACID, CODEINE PHOSPHATE, PARACETAMOL) [Concomitant]

REACTIONS (1)
  - RENAL IMPAIRMENT [None]
